FAERS Safety Report 5774584-5 (Version None)
Quarter: 2008Q2

REPORT INFORMATION
  Report Type: 
  Country: None (occurrence: None)
  Receive Date: 20080612
  Receipt Date: 20080527
  Transmission Date: 20081010
  Serious: Yes (Hospitalization, Other)
  Sender: FDA-Public Use
  Company Number: 2008BI011680

PATIENT
  Age: 41 Year
  Sex: Female

DRUGS (1)
  1. TYSABRI [Suspect]
     Indication: MULTIPLE SCLEROSIS
     Dosage: 300 MG;QM;IV
     Route: 042
     Dates: start: 20070117

REACTIONS (6)
  - CONVULSION [None]
  - FALL [None]
  - GAIT DISTURBANCE [None]
  - OPTIC NEURITIS [None]
  - STRESS [None]
  - VISUAL DISTURBANCE [None]
